FAERS Safety Report 15385246 (Version 1)
Quarter: 2018Q4

REPORT INFORMATION
  Report Type: Spontaneous
  Country: US (occurrence: US)
  Receive Date: 20180914
  Receipt Date: 20180914
  Transmission Date: 20190204
  Serious: No
  Sender: FDA-Public Use
  Company Number: US-SA-2018SA255396

PATIENT
  Sex: Female

DRUGS (2)
  1. AUBAGIO [Suspect]
     Active Substance: TERIFLUNOMIDE
     Dosage: 14 MG, QD
     Route: 048
  2. PREDNISONE [PREDNISONE ACETATE] [Suspect]
     Active Substance: PREDNISONE ACETATE
     Dosage: UNK UNK, UNK
     Route: 065
     Dates: end: 20180905

REACTIONS (3)
  - Headache [Recovering/Resolving]
  - Diarrhoea [Recovering/Resolving]
  - Nasopharyngitis [Unknown]
